FAERS Safety Report 26111664 (Version 1)
Quarter: 2025Q4

REPORT INFORMATION
  Report Type: Spontaneous
  Country: CN (occurrence: CN)
  Receive Date: 20251202
  Receipt Date: 20251202
  Transmission Date: 20260118
  Serious: Yes (Life-Threatening, Hospitalization, Other)
  Sender: RISING PHARMACEUTICALS
  Company Number: CN-RISINGPHARMA-CN-2025RISLIT00603

PATIENT
  Age: 63 Year
  Sex: Female

DRUGS (14)
  1. POLYMYXIN B SULFATE [Suspect]
     Active Substance: POLYMYXIN B SULFATE
     Indication: Acinetobacter test positive
     Route: 042
     Dates: start: 20250512, end: 20250523
  2. PIPERACILLIN AND TAZOBACTAM [Concomitant]
     Active Substance: PIPERACILLIN SODIUM\TAZOBACTAM SODIUM
     Route: 065
     Dates: start: 20250421
  3. MEROPENEM [Concomitant]
     Active Substance: MEROPENEM
     Route: 065
     Dates: start: 20250423
  4. MEROPENEM [Concomitant]
     Active Substance: MEROPENEM
     Route: 065
     Dates: start: 20250429, end: 20250512
  5. VANCOMYCIN [Concomitant]
     Active Substance: VANCOMYCIN
     Route: 065
     Dates: start: 20250429
  6. VANCOMYCIN [Concomitant]
     Active Substance: VANCOMYCIN
     Route: 065
     Dates: start: 20250512
  7. TIGECYCLINE [Concomitant]
     Active Substance: TIGECYCLINE
     Route: 065
     Dates: start: 20250512, end: 20250607
  8. HEPARIN [Concomitant]
     Active Substance: HEPARIN SODIUM
     Indication: Product used for unknown indication
     Route: 065
  9. ESOMEPRAZOLE [Concomitant]
     Active Substance: ESOMEPRAZOLE
     Indication: Product used for unknown indication
     Route: 065
  10. IBUPROFEN [Concomitant]
     Active Substance: IBUPROFEN
     Indication: Product used for unknown indication
     Route: 065
  11. OLICERIDINE FUMARATE [Concomitant]
     Indication: Pain
     Route: 042
  12. NALBUPHINE HYDROCHLORIDE [Concomitant]
     Active Substance: NALBUPHINE HYDROCHLORIDE
     Indication: Pain
     Route: 042
  13. TROPISETRON [Concomitant]
     Active Substance: TROPISETRON
     Indication: Pain
     Route: 042
  14. SODIUM CHLORIDE [Concomitant]
     Active Substance: SODIUM CHLORIDE
     Indication: Product used for unknown indication
     Dosage: PUMP RATE OF 4 ML/H
     Route: 065

REACTIONS (8)
  - Respiratory failure [Recovering/Resolving]
  - Encephalopathy [Recovering/Resolving]
  - Diaphragmatic paralysis [Recovering/Resolving]
  - Toxicity to various agents [Recovering/Resolving]
  - Dependence on respirator [Recovering/Resolving]
  - Respiratory paralysis [Recovering/Resolving]
  - Neuromuscular blockade [Recovering/Resolving]
  - Product use in unapproved indication [Unknown]

NARRATIVE: CASE EVENT DATE: 20250101
